FAERS Safety Report 6091417-0 (Version None)
Quarter: 2009Q1

REPORT INFORMATION
  Report Type: 
  Country: None (occurrence: None)
  Receive Date: 20090225
  Receipt Date: 20090123
  Transmission Date: 20090719
  Serious: No
  Sender: FDA-Public Use
  Company Number: A0765920A

PATIENT
  Sex: Female

DRUGS (1)
  1. VERAMYST [Suspect]
     Route: 045
     Dates: start: 20081201

REACTIONS (2)
  - DRUG INEFFECTIVE [None]
  - PRODUCT QUALITY ISSUE [None]
